FAERS Safety Report 10227095 (Version 1)
Quarter: 2014Q2

REPORT INFORMATION
  Report Type: Spontaneous
  Country: US (occurrence: None)
  Receive Date: 20140609
  Receipt Date: 20140609
  Transmission Date: 20141212
  Serious: Yes (Hospitalization)
  Sender: FDA-Public Use
  Company Number: None

PATIENT
  Age: 66 Year
  Sex: Male
  Weight: 82.9 kg

DRUGS (1)
  1. CEFTRIAXONE [Suspect]
     Indication: BACTERIAL INFECTION
     Route: 042
     Dates: start: 20140205, end: 20140310

REACTIONS (4)
  - Urticaria [None]
  - Rash pruritic [None]
  - Erythema [None]
  - Wheezing [None]
